FAERS Safety Report 20631371 (Version 1)
Quarter: 2022Q1

REPORT INFORMATION
  Report Type: Spontaneous
  Country: US (occurrence: None)
  Receive Date: 20220323
  Receipt Date: 20220323
  Transmission Date: 20220423
  Serious: Yes (Life-Threatening, Hospitalization, Other)
  Sender: FDA-Public Use
  Company Number: None

PATIENT
  Age: 68 Year
  Sex: Male
  Weight: 89.6 kg

DRUGS (5)
  1. LACOSAMIDE [Suspect]
     Active Substance: LACOSAMIDE
     Indication: Status epilepticus
     Dosage: FREQUENCY : ONCE;?
     Route: 040
     Dates: start: 20220321, end: 20220322
  2. Levetiracetam 1,500 mg twice daily [Concomitant]
     Dates: start: 20190930
  3. Valproic acid 500 mg every 6 hours [Concomitant]
     Dates: start: 20190930
  4. Midazolam 100 mg/100 mL infusion [Concomitant]
     Dates: start: 20220322
  5. Propofol 1,000 mg/100 mL infusion [Concomitant]
     Dates: start: 20220321, end: 20220322

REACTIONS (4)
  - Bradycardia [None]
  - Pulseless electrical activity [None]
  - Cardiac arrest [None]
  - Therapy cessation [None]

NARRATIVE: CASE EVENT DATE: 20220322
